FAERS Safety Report 9031483 (Version 1)
Quarter: 2013Q1

REPORT INFORMATION
  Report Type: Report from Study
  Country: US (occurrence: US)
  Receive Date: 20130124
  Receipt Date: 20130124
  Transmission Date: 20140127
  Serious: Yes (Hospitalization)
  Sender: FDA-Public Use
  Company Number: US-ASTRAZENECA-2013SE03144

PATIENT
  Age: 25 Year
  Sex: Female
  Weight: 63.5 kg

DRUGS (25)
  1. SEROQUEL [Suspect]
     Indication: BIPOLAR DISORDER
     Route: 048
     Dates: start: 2011, end: 2011
  2. SEROQUEL [Suspect]
     Indication: SLEEP DISORDER
     Route: 048
     Dates: start: 2011, end: 2011
  3. SEROQUEL [Suspect]
     Indication: CYCLOTHYMIC DISORDER
     Route: 048
     Dates: start: 2011, end: 2011
  4. SEROQUEL [Suspect]
     Indication: BIPOLAR DISORDER
     Route: 048
     Dates: start: 2011, end: 2011
  5. SEROQUEL [Suspect]
     Indication: SLEEP DISORDER
     Route: 048
     Dates: start: 2011, end: 2011
  6. SEROQUEL [Suspect]
     Indication: CYCLOTHYMIC DISORDER
     Route: 048
     Dates: start: 2011, end: 2011
  7. SEROQUEL [Suspect]
     Indication: BIPOLAR DISORDER
     Route: 048
     Dates: start: 201301
  8. SEROQUEL [Suspect]
     Indication: SLEEP DISORDER
     Route: 048
     Dates: start: 201301
  9. SEROQUEL [Suspect]
     Indication: CYCLOTHYMIC DISORDER
     Route: 048
     Dates: start: 201301
  10. ATENOLOL [Concomitant]
     Indication: TACHYCARDIA
  11. KLONOPIN [Concomitant]
     Indication: PANIC DISORDER
     Dates: start: 2008
  12. RECLIPSEN [Concomitant]
     Indication: ENDOMETRIOSIS
     Dates: start: 2009
  13. FLORINEF ACETATE [Concomitant]
     Indication: HYPOTENSION
  14. NEURONTIN [Concomitant]
     Indication: ANXIETY
     Dosage: 300 MG EVERY 6 HOURS AS REQUIRED
     Dates: start: 201301
  15. PLAQUENIL [Concomitant]
     Indication: LUPUS-LIKE SYNDROME
     Dates: start: 2008
  16. LEVBID [Concomitant]
     Indication: MUSCLE SPASMS
     Dosage: 0.375 MG EVERY 12 HOURS, AS REQUIRED
  17. LEVBID [Concomitant]
     Indication: DIARRHOEA
     Dosage: 0.375 MG EVERY 12 HOURS, AS REQUIRED
  18. PREVACID [Concomitant]
     Indication: DYSPEPSIA
     Dates: start: 2007
  19. LITHIUM [Concomitant]
     Indication: BIPOLAR DISORDER
     Dates: start: 2009, end: 201301
  20. LITHIUM [Concomitant]
     Indication: BIPOLAR DISORDER
     Dosage: 300 MG IN MORNING AND 600 MG AT NIGHT
     Dates: start: 201301
  21. IMMODIUM [Concomitant]
     Indication: STRESS
     Dosage: UP TO 16 MG DAILY
     Dates: start: 2009
  22. ZYRTEC D [Concomitant]
     Indication: MULTIPLE ALLERGIES
  23. ZYRTEC D [Concomitant]
     Indication: SINUSITIS
  24. PHENERGAN [Concomitant]
     Indication: NAUSEA
     Dosage: 25 MG 1 TO 2 TABLET, AS REQUIRED
     Dates: start: 2007
  25. OTHER OTC MEDICATION [Concomitant]

REACTIONS (15)
  - Suicidal ideation [Recovered/Resolved]
  - Self injurious behaviour [Recovering/Resolving]
  - Bipolar disorder [Recovering/Resolving]
  - Anxiety [Recovering/Resolving]
  - Panic disorder [Recovering/Resolving]
  - Agoraphobia [Recovering/Resolving]
  - Somnolence [Unknown]
  - Somnolence [Unknown]
  - Muscle spasms [Unknown]
  - Mood swings [Unknown]
  - Insomnia [Unknown]
  - Hallucination, visual [Unknown]
  - Sinusitis [Unknown]
  - Off label use [Unknown]
  - Drug ineffective for unapproved indication [Unknown]
